FAERS Safety Report 18068766 (Version 1)
Quarter: 2020Q3

REPORT INFORMATION
  Report Type: Spontaneous
  Country: US (occurrence: US)
  Receive Date: 20200724
  Receipt Date: 20200724
  Transmission Date: 20201103
  Serious: Yes (Disabling, Other)
  Sender: FDA-Public Use
  Company Number: US-PURDUE-USA-2020-0159494

PATIENT
  Sex: Female

DRUGS (2)
  1. VICODIN [Suspect]
     Active Substance: ACETAMINOPHEN\HYDROCODONE BITARTRATE
     Indication: NECK SURGERY
     Dosage: UNKNOWN
     Route: 065
  2. HYDROCODONE BITARTRATE AND ACETAMINOPHEN [Suspect]
     Active Substance: ACETAMINOPHEN\HYDROCODONE BITARTRATE
     Indication: NECK SURGERY
     Dosage: UNKNOWN
     Route: 048
     Dates: start: 2007, end: 2009

REACTIONS (8)
  - Anxiety [Unknown]
  - Drug dependence [Not Recovered/Not Resolved]
  - Bipolar disorder [Unknown]
  - Imprisonment [Unknown]
  - Hallucination [Unknown]
  - Drug abuse [Unknown]
  - Paranoia [Unknown]
  - Depression [Unknown]
